FAERS Safety Report 23280340 (Version 1)
Quarter: 2023Q4

REPORT INFORMATION
  Report Type: Spontaneous
  Country: US (occurrence: US)
  Receive Date: 20231210
  Receipt Date: 20231210
  Transmission Date: 20240110
  Serious: No
  Sender: FDA-Public Use
  Company Number: US-SA-SAC20231204001446

PATIENT
  Sex: Female
  Weight: 100.69 kg

DRUGS (2)
  1. DUPIXENT [Suspect]
     Active Substance: DUPILUMAB
     Indication: Illness
     Dosage: 300MG, EVERY 2 WEEKS
     Route: 058
     Dates: end: 202307
  2. DUPIXENT [Suspect]
     Active Substance: DUPILUMAB
     Indication: Asthma

REACTIONS (2)
  - Weight increased [Unknown]
  - Asthma [Unknown]

NARRATIVE: CASE EVENT DATE: 20230701
